FAERS Safety Report 8458509-X (Version None)
Quarter: 2012Q2

REPORT INFORMATION
  Report Type: 
  Country: None (occurrence: None)
  Receive Date: 20120622
  Receipt Date: 20120611
  Transmission Date: 20120825
  Serious: Yes (Hospitalization, Other)
  Sender: FDA-Public Use
  Company Number: US-ELI_LILLY_AND_COMPANY-US201108001594

PATIENT
  Sex: Female

DRUGS (14)
  1. VITAMIN D [Concomitant]
     Dosage: 50000 IU, UNK
  2. DEPAKOTE [Concomitant]
     Indication: MIGRAINE
     Dosage: 500 MG, UNK
  3. SIMVASTATIN [Concomitant]
     Dosage: 20 MG, UNK
  4. PRILOSEC [Concomitant]
     Dosage: 20 MG, UNK
  5. VITAMINS NOS [Concomitant]
  6. FORTEO [Suspect]
     Indication: OSTEOPOROSIS
     Dosage: 20 UG, QD
     Route: 065
     Dates: start: 20110706
  7. FORTEO [Suspect]
     Dosage: 20 UG, QD
     Route: 065
  8. IRON [Concomitant]
  9. AMBIEN [Concomitant]
     Indication: SLEEP DISORDER
     Dosage: 10 MG, UNK
  10. BACLOFEN [Concomitant]
     Indication: SLEEP DISORDER
     Dosage: 10 MG, UNK
  11. FORTEO [Suspect]
     Dosage: 20 UG, QD
     Route: 065
  12. LEVOTHYROXINE [Concomitant]
     Dosage: 0.88 UG, UNK
  13. FORTEO [Suspect]
     Dosage: 20 UG, QD
     Route: 065
  14. THE VISION FORMULA [Concomitant]
     Indication: MACULAR DEGENERATION

REACTIONS (9)
  - BONE DISORDER [None]
  - OEDEMA PERIPHERAL [None]
  - GAIT DISTURBANCE [None]
  - WEIGHT INCREASED [None]
  - ARTHRALGIA [None]
  - HIP FRACTURE [None]
  - FEELING ABNORMAL [None]
  - PAIN [None]
  - FALL [None]
